FAERS Safety Report 8922698 (Version 1)
Quarter: 2012Q4

REPORT INFORMATION
  Report Type: 
  Country: US (occurrence: US)
  Receive Date: 20121123
  Receipt Date: 20121123
  Transmission Date: 20130627
  Serious: No
  Sender: FDA-Public Use
  Company Number: US-PFIZER INC-2012291186

PATIENT
  Sex: Male

DRUGS (1)
  1. TORISEL [Suspect]
     Indication: BONE CANCER METASTATIC
     Dosage: UNK
     Route: 042

REACTIONS (2)
  - Disease progression [Unknown]
  - Bone cancer metastatic [Unknown]
